FAERS Safety Report 17005706 (Version 2)
Quarter: 2019Q4

REPORT INFORMATION
  Report Type: Spontaneous
  Country: US (occurrence: US)
  Receive Date: 20191107
  Receipt Date: 20191213
  Transmission Date: 20200122
  Serious: Yes (Other)
  Sender: FDA-Public Use
  Company Number: US-ROCHE-2456428

PATIENT
  Age: 45 Year
  Sex: Female
  Weight: 87.17 kg

DRUGS (16)
  1. XOLAIR [Suspect]
     Active Substance: OMALIZUMAB
     Route: 058
     Dates: start: 201905
  2. PANTOPRAZOLE [Concomitant]
     Active Substance: PANTOPRAZOLE
     Route: 048
  3. DILTIAZEM. [Concomitant]
     Active Substance: DILTIAZEM
     Route: 048
  4. PROAIR HFA [Concomitant]
     Active Substance: ALBUTEROL SULFATE
     Indication: ASTHMA
     Dosage: 2 PUFF PER DAY
     Route: 055
  5. SPIRIVA [Concomitant]
     Active Substance: TIOTROPIUM BROMIDE MONOHYDRATE
     Route: 055
  6. NORCO [Concomitant]
     Active Substance: ACETAMINOPHEN\HYDROCODONE BITARTRATE
     Dosage: 5/325 AS NEEDED
     Route: 048
  7. ALBUTEROL [SALBUTAMOL] [Concomitant]
     Active Substance: ALBUTEROL
     Route: 055
  8. XOLAIR [Suspect]
     Active Substance: OMALIZUMAB
     Indication: ASTHMA
     Route: 058
     Dates: start: 2003
  9. CLARITIN [Concomitant]
     Active Substance: LORATADINE
     Route: 048
  10. ADVAIR HFA [Concomitant]
     Active Substance: FLUTICASONE PROPIONATE\SALMETEROL XINAFOATE
     Indication: ASTHMA
     Dosage: 250/50
     Route: 055
  11. DILTIAZEM. [Concomitant]
     Active Substance: DILTIAZEM
     Route: 048
  12. COLACE [Concomitant]
     Active Substance: DOCUSATE SODIUM
     Route: 048
  13. SIMVASTATIN. [Concomitant]
     Active Substance: SIMVASTATIN
     Route: 048
  14. IBUPROFEN. [Concomitant]
     Active Substance: IBUPROFEN
     Route: 048
  15. RANITIDINE. [Concomitant]
     Active Substance: RANITIDINE
     Dosage: AT BEDTIME
     Route: 048
  16. DYMISTA [Concomitant]
     Active Substance: AZELASTINE HYDROCHLORIDE\FLUTICASONE PROPIONATE
     Dosage: 1 PUFF
     Route: 055

REACTIONS (8)
  - Needle issue [Unknown]
  - Anaemia [Recovered/Resolved]
  - Exposure to toxic agent [Not Recovered/Not Resolved]
  - Haemorrhagic disorder [Recovering/Resolving]
  - Product quality issue [Unknown]
  - Injection site pain [Unknown]
  - Rotator cuff repair [Recovered/Resolved]
  - Uterine dilation and curettage [Recovered/Resolved]

NARRATIVE: CASE EVENT DATE: 20170412
